FAERS Safety Report 9994133 (Version 2)
Quarter: 2014Q1

REPORT INFORMATION
  Report Type: Spontaneous
  Country: AR (occurrence: AR)
  Receive Date: 20140310
  Receipt Date: 20140310
  Transmission Date: 20141002
  Serious: Yes (Hospitalization)
  Sender: FDA-Public Use
  Company Number: AR-AMGEN-ARGSP2014001498

PATIENT
  Age: 69 Year
  Sex: Female
  Weight: 130 kg

DRUGS (5)
  1. ENBREL [Suspect]
     Indication: RHEUMATOID ARTHRITIS
     Dosage: 50 MG, WEEKLY
     Route: 065
     Dates: start: 20060504
  2. NAPRUX                             /00256201/ [Concomitant]
     Dosage: UNK
  3. PANTOP [Concomitant]
     Dosage: UNK
  4. LOSACOR [Concomitant]
     Dosage: UNK
  5. DOLOFRIX [Concomitant]
     Dosage: UNK

REACTIONS (8)
  - Hand deformity [Not Recovered/Not Resolved]
  - Lung disorder [Recovered/Resolved]
  - Peripheral vascular disorder [Not Recovered/Not Resolved]
  - Oedema peripheral [Not Recovered/Not Resolved]
  - Local swelling [Not Recovered/Not Resolved]
  - Joint swelling [Not Recovered/Not Resolved]
  - Mobility decreased [Not Recovered/Not Resolved]
  - Drug ineffective [Not Recovered/Not Resolved]
